FAERS Safety Report 9669934 (Version 4)
Quarter: 2013Q4

REPORT INFORMATION
  Report Type: Report from Study
  Country: FR (occurrence: FR)
  Receive Date: 20131105
  Receipt Date: 20131219
  Transmission Date: 20140711
  Serious: Yes (Hospitalization, Disabling, Other)
  Sender: FDA-Public Use
  Company Number: FR-TAKEDA-TPA2013A07381

PATIENT
  Age: 85 Year
  Sex: Male
  Weight: 74 kg

DRUGS (9)
  1. PEGINESATIDE [Suspect]
     Indication: APLASIA PURE RED CELL
     Dosage: UNK, Q4WEEKS
     Route: 065
     Dates: start: 201010, end: 20130625
  2. PEGINESATIDE [Suspect]
     Dosage: UNK, Q4WEEKS
     Route: 065
     Dates: end: 20130717
  3. PEGINESATIDE [Suspect]
     Dosage: UNK, Q4WEEKS
     Route: 065
     Dates: end: 20131106
  4. PEGINESATIDE [Suspect]
     Dosage: UNK
  5. COVERSYL [Concomitant]
     Indication: HYPERTENSION
     Dosage: 25 MG, QD
     Route: 048
  6. PRAVASTATIN [Concomitant]
     Indication: HYPERCHOLESTEROLAEMIA
     Dosage: 40 MG, QD
     Route: 048
  7. ASAFLOW [Concomitant]
     Indication: ANGINA PECTORIS
     Dosage: 80 MG, QD
     Route: 048
  8. PLAVIX [Concomitant]
     Indication: CARDIOVASCULAR EVENT PROPHYLAXIS
     Dosage: 75 MG, QD
     Route: 048
  9. CARDIO ASPIRIN [Concomitant]
     Dosage: UNK

REACTIONS (2)
  - Cardiac failure [Not Recovered/Not Resolved]
  - Coronary artery restenosis [Recovered/Resolved]
